FAERS Safety Report 16644298 (Version 2)
Quarter: 2019Q3

REPORT INFORMATION
  Report Type: Report from Study
  Country: GR (occurrence: GR)
  Receive Date: 20190729
  Receipt Date: 20190801
  Transmission Date: 20191004
  Serious: Yes (Death)
  Sender: FDA-Public Use
  Company Number: GR-PFIZER INC-2019321916

PATIENT
  Age: 70 Year
  Sex: Male
  Weight: 79 kg

DRUGS (10)
  1. OMEPRAZOLE. [Concomitant]
     Active Substance: OMEPRAZOLE
     Indication: PREMEDICATION
     Dosage: 40 MG, EVERY 3 WEEKS
     Route: 042
     Dates: start: 20190418, end: 20190621
  2. APREPITANT. [Concomitant]
     Active Substance: APREPITANT
     Indication: PREMEDICATION
     Dosage: 150 MG, EVERY 3 WEEKS
     Route: 042
     Dates: start: 20190418, end: 20190621
  3. AVELUMAB [Suspect]
     Active Substance: AVELUMAB
     Indication: SMALL CELL LUNG CANCER
     Dosage: STARTING FROM C3D1
     Route: 042
     Dates: start: 20190527, end: 20190626
  4. ETOPOSIDE. [Suspect]
     Active Substance: ETOPOSIDE
     Indication: SMALL CELL LUNG CANCER
     Dosage: D1-D3
     Route: 042
     Dates: start: 20190418, end: 20190621
  5. OLMESARTAN/AMLODIPINE/HYDROCHLOROTHIAZIDE [Concomitant]
     Active Substance: AMLODIPINE\HYDROCHLOROTHIAZIDE\OLMESARTAN
     Indication: HYPERTENSION
     Dosage: 20/5/12.5MGDATE OF LAST DOSE: 20 JUL 2019
     Route: 048
     Dates: start: 20000701
  6. DIMETINDENE [Concomitant]
     Active Substance: DIMETHINDENE
     Indication: PREMEDICATION
     Dosage: 4 MG, EVERY 3 WEEKS
     Route: 042
     Dates: start: 20190418, end: 20190621
  7. ALLOPURINOL. [Concomitant]
     Active Substance: ALLOPURINOL
     Indication: HYPERURICAEMIA
     Dosage: LAST DOSE: 20-JUL-2019
     Route: 048
     Dates: start: 20190618
  8. GRANISETRON [Concomitant]
     Active Substance: GRANISETRON
     Indication: PREMEDICATION
     Dosage: 3 MG, EVERY 3 WEEKS
     Route: 042
     Dates: start: 20190418, end: 20190621
  9. CARBOPLATIN. [Suspect]
     Active Substance: CARBOPLATIN
     Indication: SMALL CELL LUNG CANCER
     Dosage: INSTEAD OF CISPLATIN ON C4D1
     Route: 042
     Dates: start: 20190619, end: 20190619
  10. CISPLATIN. [Suspect]
     Active Substance: CISPLATIN
     Indication: SMALL CELL LUNG CANCER
     Dosage: 151.2 MG, EVERY 3 WEEKS
     Route: 042
     Dates: start: 20190418, end: 20190527

REACTIONS (1)
  - Lung infection [Fatal]

NARRATIVE: CASE EVENT DATE: 20190716
